FAERS Safety Report 10442152 (Version 1)
Quarter: 2014Q2

REPORT INFORMATION
  Report Type: Spontaneous
  Country: US (occurrence: None)
  Receive Date: 20140616
  Receipt Date: 20140616
  Transmission Date: 20141212
  Serious: Yes (Hospitalization)
  Sender: FDA-Public Use
  Company Number: 2012-003774

PATIENT
  Age: 62 Year
  Sex: Female
  Weight: 84.5 kg

DRUGS (12)
  1. ACTONEL (RISEDRONATE SODIUM) TABLET, 35MG [Suspect]
     Indication: OSTEOPOROSIS
     Route: 048
     Dates: start: 20060715, end: 2006
  2. FOSAMAX (ALENDRONATE SODIUM) [Suspect]
     Indication: OSTEOPOROSIS
     Route: 048
     Dates: end: 200904
  3. FOSAMAX PLUS D [Suspect]
     Indication: OSTEOPOROSIS
     Dosage: 70 MG/2800 UINTS ONCE WEEKLY, ORAL
     Route: 048
     Dates: start: 20070228, end: 20080214
  4. ALENDRONATE SODIUM (ALENDRONATE SODIUM) (ALENDRONATE SODIUM) [Suspect]
     Indication: OSTEOPOROSIS
     Route: 048
     Dates: start: 200803, end: 200804
  5. SIMVASTATIN (SIMVASTATIN) [Concomitant]
  6. LOVASTATIN (LOVASTATIN) [Concomitant]
  7. PROPRANOLOL (PROPRANOLOL) [Concomitant]
  8. ZOLPIDEM (ZOLPIDEM) [Concomitant]
  9. FLUTICASONE (FLUTICASONE) [Concomitant]
  10. AZITHROMYCIN (AZITHROMYCIN) [Concomitant]
  11. CLARITHROMYCIN (CLARITHROMYCIN) [Concomitant]
  12. CIPROFLOXACIN (CIPROFLOXACIN) [Concomitant]

REACTIONS (6)
  - Femoral neck fracture [None]
  - Fracture displacement [None]
  - Fall [None]
  - Limb asymmetry [None]
  - Pain [None]
  - Pain in extremity [None]
